FAERS Safety Report 5452034-6 (Version None)
Quarter: 2007Q3

REPORT INFORMATION
  Report Type: 
  Country: None (occurrence: None)
  Receive Date: 20070912
  Receipt Date: 20070829
  Transmission Date: 20080115
  Serious: Yes (Hospitalization)
  Sender: FDA-Public Use
  Company Number: 2007US002114

PATIENT
  Age: 68 Year
  Sex: Female

DRUGS (18)
  1. PROGRAF [Suspect]
     Indication: HEART TRANSPLANT
     Dosage: 2 MG, BID,; 3 MG, BID,; 3 MG, BID,; 6 MG, BID,
     Dates: start: 20060501, end: 20070101
  2. PROGRAF [Suspect]
     Indication: HEART TRANSPLANT
     Dosage: 2 MG, BID,; 3 MG, BID,; 3 MG, BID,; 6 MG, BID,
     Dates: start: 20070101, end: 20070820
  3. PROGRAF [Suspect]
     Indication: HEART TRANSPLANT
     Dosage: 2 MG, BID,; 3 MG, BID,; 3 MG, BID,; 6 MG, BID,
     Dates: start: 20070820, end: 20070821
  4. PROGRAF [Suspect]
     Indication: HEART TRANSPLANT
     Dosage: 2 MG, BID,; 3 MG, BID,; 3 MG, BID,; 6 MG, BID,
     Dates: start: 20070821
  5. MULTI-VIT (VITAMINS NOS) [Concomitant]
  6. IRON (IRON) [Concomitant]
  7. ZOCOR [Concomitant]
  8. POTASSIUM (POTASSIUM CHLORIDE) [Concomitant]
  9. FISH OIL (FISH OIL) [Concomitant]
  10. CALCIUM (ASCORBIC ACID) [Concomitant]
  11. MAGNESIUM (MAGNESIUM CARBONATE) [Concomitant]
  12. CELLCEPT [Concomitant]
  13. FOSAMAX [Concomitant]
  14. LASIX [Concomitant]
  15. PEPCID [Concomitant]
  16. LISINOPRIL (LISINOPRIL DIHYDRATE) [Concomitant]
  17. DILANTIN [Concomitant]
  18. COREG [Concomitant]

REACTIONS (1)
  - DRUG LEVEL BELOW THERAPEUTIC [None]
